FAERS Safety Report 8597839-8 (Version None)
Quarter: 2012Q3

REPORT INFORMATION
  Report Type: 
  Country: None (occurrence: None)
  Receive Date: 20120816
  Receipt Date: 20120814
  Transmission Date: 20120928
  Serious: Yes (Other)
  Sender: FDA-Public Use
  Company Number: PHHO2012KR011426

PATIENT
  Sex: Female

DRUGS (4)
  1. CERTICAN [Suspect]
     Indication: RENAL TRANSPLANT
     Dosage: UNK
     Route: 048
  2. MYCOPHENOLIC ACID [Suspect]
     Indication: RENAL TRANSPLANT
  3. SIMULECT [Suspect]
     Indication: RENAL TRANSPLANT
  4. NEORAL [Suspect]
     Indication: RENAL TRANSPLANT

REACTIONS (2)
  - REPRODUCTIVE TRACT DISORDER [None]
  - BREAST DISORDER [None]
